FAERS Safety Report 17238868 (Version 1)
Quarter: 2020Q1

REPORT INFORMATION
  Report Type: Spontaneous
  Country: US (occurrence: US)
  Receive Date: 20200105
  Receipt Date: 20200105
  Transmission Date: 20200409
  Serious: No
  Sender: FDA-Public Use
  Company Number: None

PATIENT
  Age: 57 Year
  Sex: Female
  Weight: 108 kg

DRUGS (6)
  1. HYDROXYCHLOIQUIN [Concomitant]
  2. AIMOVIG [Suspect]
     Active Substance: ERENUMAB-AOOE
     Indication: MIGRAINE
     Dosage: ?          OTHER FREQUENCY:MONTHLY;?
     Route: 058
     Dates: start: 20190405, end: 20191205
  3. BUSPAR [Concomitant]
     Active Substance: BUSPIRONE HYDROCHLORIDE
  4. DULOXETINE. [Concomitant]
     Active Substance: DULOXETINE
  5. THYROID MEDICIE SYNTHROID [Concomitant]
  6. ADVIL [Concomitant]
     Active Substance: IBUPROFEN

REACTIONS (2)
  - Alopecia [None]
  - Hair texture abnormal [None]

NARRATIVE: CASE EVENT DATE: 20190915
